FAERS Safety Report 11806530 (Version 1)
Quarter: 2015Q4

REPORT INFORMATION
  Report Type: Spontaneous
  Country: US (occurrence: US)
  Receive Date: 20151207
  Receipt Date: 20151207
  Transmission Date: 20160305
  Serious: No
  Sender: FDA-Public Use
  Company Number: US-GLAXOSMITHKLINE-US2015GSK170868

PATIENT
  Age: 80 Year
  Sex: Male

DRUGS (1)
  1. TANZEUM [Suspect]
     Active Substance: ALBIGLUTIDE
     Indication: DIABETES MELLITUS
     Dosage: 50 MG, WE
     Route: 042
     Dates: start: 201507

REACTIONS (6)
  - Accidental exposure to product [Unknown]
  - Underdose [Unknown]
  - Device use error [Unknown]
  - Product preparation error [Unknown]
  - Exposure via direct contact [Unknown]
  - Blood glucose increased [Unknown]

NARRATIVE: CASE EVENT DATE: 201511
